FAERS Safety Report 6258310-1 (Version None)
Quarter: 2009Q3

REPORT INFORMATION
  Report Type: 
  Country: None (occurrence: None)
  Receive Date: 20090702
  Receipt Date: 20090617
  Transmission Date: 20100115
  Serious: Yes (Other)
  Sender: FDA-Public Use
  Company Number: 8047848

PATIENT
  Age: 43 Year
  Sex: Female
  Weight: 100 kg

DRUGS (13)
  1. CERTOLIZUMAB PEGOL [Suspect]
     Indication: RHEUMATOID ARTHRITIS
     Dosage: 400 MG 1 2W SC
     Route: 058
     Dates: start: 20050531, end: 20060516
  2. CERTOLIZUMAB PEGOL [Suspect]
     Indication: RHEUMATOID ARTHRITIS
     Dosage: 400 MG 1 2W SC
     Route: 058
     Dates: start: 20060530, end: 20071113
  3. CERTOLIZUMAB PEGOL [Suspect]
     Indication: RHEUMATOID ARTHRITIS
     Dosage: 200 MG 1 2W SC
     Route: 058
     Dates: start: 20071127, end: 20080610
  4. CERTOLIZUMAB PEGOL [Suspect]
     Indication: RHEUMATOID ARTHRITIS
     Dosage: 200 MG 1 2W SC
     Route: 058
     Dates: start: 20080625, end: 20090414
  5. CERTOLIZUMAB PEGOL [Suspect]
     Indication: RHEUMATOID ARTHRITIS
     Dosage: 200 MG 1 2W SC
     Route: 058
     Dates: start: 20090526, end: 20090609
  6. METHOTREXATE [Concomitant]
  7. MELOXICAM [Concomitant]
  8. METHYLPREDNISOLONE [Concomitant]
  9. LOGEST [Concomitant]
  10. OMEPRAZOLE [Concomitant]
  11. QUINAPRIL [Concomitant]
  12. SYMBICORT [Concomitant]
  13. FERROUS SULFATE TAB [Concomitant]

REACTIONS (4)
  - BRONCHITIS [None]
  - LUNG DISORDER [None]
  - LYMPHADENOPATHY [None]
  - PULMONARY TUBERCULOSIS [None]
